FAERS Safety Report 7459932-2 (Version None)
Quarter: 2011Q2

REPORT INFORMATION
  Report Type: 
  Country: None (occurrence: None)
  Receive Date: 20110504
  Receipt Date: 20110504
  Transmission Date: 20111010
  Serious: Yes (Life-Threatening)
  Sender: FDA-Public Use
  Company Number: None

PATIENT
  Age: 67 Year
  Sex: Female
  Weight: 88.905 kg

DRUGS (1)
  1. HYDROXYCHLOROQUINE SULFATE [Suspect]
     Indication: MIXED CONNECTIVE TISSUE DISEASE
     Dosage: 200MG BID PO
     Route: 048
     Dates: start: 20100801, end: 20110412

REACTIONS (10)
  - HYPOKALAEMIA [None]
  - OEDEMA PERIPHERAL [None]
  - JOINT STIFFNESS [None]
  - PAIN [None]
  - TORSADE DE POINTES [None]
  - DISCOMFORT [None]
  - MUSCULOSKELETAL CHEST PAIN [None]
  - RIB FRACTURE [None]
  - CARDIAC ARREST [None]
  - JOINT WARMTH [None]
